FAERS Safety Report 21984263 (Version 2)
Quarter: 2024Q2

REPORT INFORMATION
  Report Type: Spontaneous
  Country: FR (occurrence: FR)
  Receive Date: 20230213
  Receipt Date: 20240506
  Transmission Date: 20240715
  Serious: Yes (Hospitalization)
  Sender: FDA-Public Use
  Company Number: None

PATIENT
  Age: 42 Year
  Sex: Male

DRUGS (7)
  1. CLONAZEPAM [Suspect]
     Active Substance: CLONAZEPAM
     Indication: Product used for unknown indication
     Route: 042
     Dates: start: 202301
  2. METHYLPHENIDATE [Suspect]
     Active Substance: METHYLPHENIDATE
     Indication: Product used for unknown indication
     Dosage: TID (40-30-10 MG)
     Route: 042
     Dates: start: 202301
  3. SKENAN [Suspect]
     Active Substance: MORPHINE SULFATE
     Indication: Product used for unknown indication
     Dosage: LP200 (1-1-1), TID
     Route: 042
     Dates: start: 2021
  4. METHYLPHENIDATE HYDROCHLORIDE [Suspect]
     Active Substance: METHYLPHENIDATE HYDROCHLORIDE
     Indication: Product used for unknown indication
     Route: 042
     Dates: start: 202210
  5. COCAINE [Suspect]
     Active Substance: COCAINE
     Dosage: OCCASIONAL
     Route: 042
  6. LYSERGIDE [Suspect]
     Active Substance: LYSERGIDE
     Dosage: PARTY CONTEXT
  7. KETAMINE [Suspect]
     Active Substance: KETAMINE
     Dosage: PARTY CONTEXT

REACTIONS (4)
  - Dermo-hypodermitis [Recovering/Resolving]
  - Drug dependence [Not Recovered/Not Resolved]
  - Fungaemia [Recovered/Resolved]
  - Drug withdrawal syndrome [Unknown]

NARRATIVE: CASE EVENT DATE: 20230105
